FAERS Safety Report 6509598-0 (Version None)
Quarter: 2009Q4

REPORT INFORMATION
  Report Type: 
  Country: None (occurrence: None)
  Receive Date: 20091222
  Receipt Date: 20091217
  Transmission Date: 20100525
  Serious: Yes (Other)
  Sender: FDA-Public Use
  Company Number: BR-ROCHE-668126

PATIENT
  Sex: Male
  Weight: 91 kg

DRUGS (3)
  1. RIVOTRIL [Suspect]
     Indication: SLEEP DISORDER
     Dosage: 1 TAB/DAY
     Route: 048
  2. DORMONID [Suspect]
     Indication: SLEEP DISORDER
     Route: 048
  3. DIOVAN [Concomitant]
     Indication: HYPERTENSION

REACTIONS (4)
  - CORONARY ARTERY OCCLUSION [None]
  - ERECTILE DYSFUNCTION [None]
  - SEXUAL DYSFUNCTION [None]
  - TYPE 2 DIABETES MELLITUS [None]
